FAERS Safety Report 18195788 (Version 1)
Quarter: 2020Q3

REPORT INFORMATION
  Report Type: Report from Study
  Country: US (occurrence: US)
  Receive Date: 20200825
  Receipt Date: 20200825
  Transmission Date: 20201103
  Serious: Yes (Death)
  Sender: FDA-Public Use
  Company Number: US-OTSUKA-2019_035109

PATIENT
  Age: 26 Year
  Sex: Female

DRUGS (1)
  1. DEXTROMETHORPHAN/QUINIDINE [Suspect]
     Active Substance: DEXTROMETHORPHAN HYDROBROMIDE\QUINIDINE SULFATE
     Indication: AFFECT LABILITY
     Dosage: 1 DF(20/10 MG), BID
     Route: 050
     Dates: start: 20190301

REACTIONS (5)
  - Muscular weakness [Unknown]
  - Incorrect route of product administration [Unknown]
  - Death [Fatal]
  - Gait disturbance [Unknown]
  - Posture abnormal [Unknown]

NARRATIVE: CASE EVENT DATE: 20190301
